FAERS Safety Report 20987493 (Version 3)
Quarter: 2022Q4

REPORT INFORMATION
  Report Type: Spontaneous
  Country: US (occurrence: US)
  Receive Date: 20220621
  Receipt Date: 20221227
  Transmission Date: 20230113
  Serious: No
  Sender: FDA-Public Use
  Company Number: US-ARRAY-2019-05460

PATIENT
  Age: 61 Year
  Sex: Female

DRUGS (4)
  1. MEKTOVI [Suspect]
     Active Substance: BINIMETINIB
     Indication: Malignant melanoma
     Dosage: 45 MG, 2X/DAY
     Route: 048
     Dates: start: 20190322
  2. MEKTOVI [Suspect]
     Active Substance: BINIMETINIB
     Dosage: 75 MG, DAILY (TAKE 5 TABS DAILY TAKE 3 TABS IN AM AND 2 TABS IN PM)
     Route: 048
  3. BRAFTOVI [Suspect]
     Active Substance: ENCORAFENIB
     Indication: Malignant melanoma
     Dosage: 450 MG, 1X/DAY
     Route: 048
     Dates: start: 20190322
  4. BRAFTOVI [Suspect]
     Active Substance: ENCORAFENIB
     Indication: Malignant melanoma
     Dosage: 375 MG, 1X/DAY (TAKE 5 CAPSULES BY MOUTH DAILY 1 TIME A DAY)
     Route: 048

REACTIONS (4)
  - Chills [Unknown]
  - Arthralgia [Unknown]
  - Myalgia [Unknown]
  - Pyrexia [Unknown]

NARRATIVE: CASE EVENT DATE: 20190301
